FAERS Safety Report 4618957-2 (Version None)
Quarter: 2005Q1

REPORT INFORMATION
  Report Type: 
  Country: None (occurrence: None)
  Receive Date: 20050325
  Receipt Date: 20050315
  Transmission Date: 20050727
  Serious: Yes (Death)
  Sender: FDA-Public Use
  Company Number: US-JNJFOC-20050304150

PATIENT
  Age: 65 Year
  Sex: Female
  Weight: 74.2 kg

DRUGS (4)
  1. INFLIXIMAB [Suspect]
     Indication: NON-SMALL CELL LUNG CANCER
     Route: 042
  2. PLACEBO [Suspect]
     Indication: NON-SMALL CELL LUNG CANCER
     Route: 042
  3. DOCETAXEL [Suspect]
     Route: 042
  4. DOCETAXEL [Suspect]
     Indication: NON-SMALL CELL LUNG CANCER
     Route: 042

REACTIONS (10)
  - ARTHRALGIA [None]
  - ASTHENIA [None]
  - CONSTIPATION [None]
  - DEHYDRATION [None]
  - DYSPHAGIA [None]
  - FATIGUE [None]
  - INSOMNIA [None]
  - MALIGNANT NEOPLASM PROGRESSION [None]
  - NECK PAIN [None]
  - PAIN IN EXTREMITY [None]
